FAERS Safety Report 9273476 (Version 1)
Quarter: 2013Q2

REPORT INFORMATION
  Report Type: Spontaneous
  Country: US (occurrence: US)
  Receive Date: 20130506
  Receipt Date: 20130506
  Transmission Date: 20140414
  Serious: No
  Sender: FDA-Public Use
  Company Number: US-AMGEN-USASP2013028198

PATIENT
  Age: 21 Year
  Sex: Female

DRUGS (1)
  1. ENBREL [Suspect]
     Indication: RHEUMATOID ARTHRITIS
     Dosage: 50 MG, UNK, ONCE IN EVERY TEN DAYS
     Dates: start: 20120501, end: 201304

REACTIONS (2)
  - Sinus disorder [Recovered/Resolved]
  - Pain in jaw [Not Recovered/Not Resolved]
